FAERS Safety Report 4559677-2 (Version None)
Quarter: 2005Q1

REPORT INFORMATION
  Report Type: 
  Country: None (occurrence: None)
  Receive Date: 20050114
  Receipt Date: 20031204
  Transmission Date: 20050727
  Serious: Yes (Hospitalization)
  Sender: FDA-Public Use
  Company Number: 20031003837

PATIENT
  Age: 39 Year
  Sex: Female
  Weight: 70.7611 kg

DRUGS (2)
  1. INTRAUTERINE COPPER CONTRACEPTIVE [Suspect]
     Indication: CONTRACEPTION
     Dosage: INTRA-UTERINE
     Route: 015
     Dates: start: 20010605, end: 20031015
  2. SYNTHROID [Concomitant]

REACTIONS (3)
  - CERVICAL POLYP [None]
  - IUCD COMPLICATION [None]
  - PELVIC PAIN [None]
